FAERS Safety Report 24062508 (Version 2)
Quarter: 2024Q3

REPORT INFORMATION
  Report Type: Spontaneous
  Country: JP (occurrence: JP)
  Receive Date: 20240708
  Receipt Date: 20240726
  Transmission Date: 20241016
  Serious: Yes (Other)
  Sender: CARA THERAPEUTICS
  Company Number: JP-CARA THERAPEUTICS, INC.-2024-00322-JP

PATIENT
  Age: 91 Year
  Sex: Male

DRUGS (7)
  1. KORSUVA [Suspect]
     Active Substance: DIFELIKEFALIN ACETATE
     Indication: Pruritus
     Dosage: 17.5 ?G
     Route: 042
     Dates: start: 20240305, end: 20240518
  2. MAXACALCITOL [Concomitant]
     Active Substance: MAXACALCITOL
  3. DARBEPOETIN ALFA [Concomitant]
     Active Substance: DARBEPOETIN ALFA
  4. DESLORATADINE [Concomitant]
     Active Substance: DESLORATADINE
  5. CARBOCYSTEINE [Concomitant]
     Active Substance: CARBOCYSTEINE
  6. PRAVASTATIN SODIUM [Concomitant]
     Active Substance: PRAVASTATIN SODIUM
  7. AMLODIPINE BESYLATE [Concomitant]
     Active Substance: AMLODIPINE BESYLATE

REACTIONS (2)
  - Altered state of consciousness [Recovered/Resolved]
  - Dementia [Recovered/Resolved]
